FAERS Safety Report 23390177 (Version 1)
Quarter: 2024Q1

REPORT INFORMATION
  Report Type: Report from Study
  Country: CA (occurrence: CA)
  Receive Date: 20240111
  Receipt Date: 20240111
  Transmission Date: 20240410
  Serious: Yes (Death)
  Sender: FDA-Public Use
  Company Number: CA-drreddys-CLI/CAN/23/0162265

PATIENT
  Age: 65 Year
  Sex: Male
  Weight: 84.4 kg

DRUGS (1)
  1. AZACITIDINE [Suspect]
     Active Substance: AZACITIDINE
     Indication: Acute myeloid leukaemia refractory
     Dates: start: 20220908

REACTIONS (1)
  - Death [Fatal]
